FAERS Safety Report 14693940 (Version 2)
Quarter: 2018Q2

REPORT INFORMATION
  Report Type: Report from Study
  Country: CA (occurrence: CA)
  Receive Date: 20180329
  Receipt Date: 20180418
  Transmission Date: 20180711
  Serious: Yes (Other)
  Sender: FDA-Public Use
  Company Number: CA-REGENERON PHARMACEUTICALS, INC.-2018-15205

PATIENT

DRUGS (2)
  1. EYLEA [Suspect]
     Active Substance: AFLIBERCEPT
     Indication: NEOVASCULAR AGE-RELATED MACULAR DEGENERATION
     Dosage: TOTAL 6 DOSES IN LAST 6 MONTHS PRIOR TO EVENT
     Route: 031
  2. EYLEA [Suspect]
     Active Substance: AFLIBERCEPT
     Dosage: LAST DOSE PRIOR TO EVENT
     Route: 031
     Dates: start: 20180129, end: 20180129

REACTIONS (2)
  - Blindness unilateral [Unknown]
  - Endophthalmitis [Unknown]

NARRATIVE: CASE EVENT DATE: 20180129
